FAERS Safety Report 4355288-2 (Version None)
Quarter: 2004Q2

REPORT INFORMATION
  Report Type: 
  Country: None (occurrence: None)
  Receive Date: 20040504
  Receipt Date: 20031003
  Transmission Date: 20050107
  Serious: Yes (Hospitalization)
  Sender: FDA-Public Use
  Company Number: 200305640

PATIENT
  Age: 2 Year
  Sex: Female
  Weight: 11.5 kg

DRUGS (2)
  1. IMODIUM A-D [Suspect]
     Indication: DIARRHOEA
     Dosage: 1 MG TID PO
     Route: 048
  2. DOMPERIDONE [Suspect]
     Indication: VOMITING
     Dosage: 10 MG X 3 RECTAL

REACTIONS (5)
  - DEHYDRATION [None]
  - GASTROENTERITIS [None]
  - ILEUS PARALYTIC [None]
  - LABORATORY TEST ABNORMAL [None]
  - LYMPHADENOPATHY [None]
